FAERS Safety Report 16019917 (Version 4)
Quarter: 2020Q1

REPORT INFORMATION
  Report Type: Report from Study
  Country: US (occurrence: US)
  Receive Date: 20190228
  Receipt Date: 20200122
  Transmission Date: 20200409
  Serious: Yes (Hospitalization, Other)
  Sender: FDA-Public Use
  Company Number: US-ACTELION-A-NJ2016-133355

PATIENT
  Age: 46 Year
  Sex: Female

DRUGS (20)
  1. RIOCIGUAT. [Concomitant]
     Active Substance: RIOCIGUAT
  2. REMICADE [Concomitant]
     Active Substance: INFLIXIMAB
  3. MERCAPTOPURIN [Concomitant]
     Active Substance: MERCAPTOPURINE
  4. ELIQUIS [Concomitant]
     Active Substance: APIXABAN
  5. MAGNESIUM [Concomitant]
     Active Substance: MAGNESIUM
  6. REGLAN [Concomitant]
     Active Substance: METOCLOPRAMIDE HYDROCHLORIDE
  7. PROMAZINE [Concomitant]
     Active Substance: PROMAZINE
  8. ENTYVIO [Concomitant]
     Active Substance: VEDOLIZUMAB
  9. OPSUMIT [Suspect]
     Active Substance: MACITENTAN
     Indication: PULMONARY ARTERIAL HYPERTENSION
     Dosage: 10 MG, QD
     Route: 048
     Dates: start: 20151120
  10. PREVACID [Concomitant]
     Active Substance: LANSOPRAZOLE
  11. SILDENAFIL. [Concomitant]
     Active Substance: SILDENAFIL
  12. METAXALONE. [Concomitant]
     Active Substance: METAXALONE
  13. SUDAFED [Concomitant]
     Active Substance: PSEUDOEPHEDRINE HYDROCHLORIDE
  14. OPSUMIT [Suspect]
     Active Substance: MACITENTAN
     Dosage: 10 MG, QD
     Route: 048
     Dates: start: 20170127
  15. XANAX [Concomitant]
     Active Substance: ALPRAZOLAM
  16. TORSEMIDE. [Concomitant]
     Active Substance: TORSEMIDE
  17. IRON [Concomitant]
     Active Substance: IRON
  18. POTASSIUM [Concomitant]
     Active Substance: POTASSIUM
  19. DEMEROL [Concomitant]
     Active Substance: MEPERIDINE HYDROCHLORIDE
  20. PREDNISONE. [Suspect]
     Active Substance: PREDNISONE
     Indication: PRODUCT USED FOR UNKNOWN INDICATION
     Route: 065

REACTIONS (27)
  - Enterococcal infection [Unknown]
  - Dry skin [Unknown]
  - Erythema [Unknown]
  - Furuncle [Unknown]
  - Malaise [Unknown]
  - Crohn^s disease [Unknown]
  - Hair disorder [Unknown]
  - Alopecia [Unknown]
  - Pruritus [Unknown]
  - Blood creatinine increased [Unknown]
  - Rash pustular [Unknown]
  - Asthenia [Recovered/Resolved]
  - Eczema [Unknown]
  - Dizziness [Recovered/Resolved]
  - Fluid retention [Unknown]
  - Temperature intolerance [Unknown]
  - Urticaria [Unknown]
  - Seborrhoeic dermatitis [Unknown]
  - Hypotension [Unknown]
  - Rash [Unknown]
  - Dyspnoea [Unknown]
  - Pain of skin [Unknown]
  - Product dose omission [Unknown]
  - Nausea [Unknown]
  - Knee arthroplasty [Unknown]
  - Exfoliative rash [Unknown]
  - Heart rate increased [Recovered/Resolved]

NARRATIVE: CASE EVENT DATE: 201703
